FAERS Safety Report 4322980-5 (Version None)
Quarter: 2004Q1

REPORT INFORMATION
  Report Type: 
  Country: None (occurrence: None)
  Receive Date: 20040322
  Receipt Date: 20040315
  Transmission Date: 20041129
  Serious: Yes (Death)
  Sender: FDA-Public Use
  Company Number: 200415560BWH

PATIENT

DRUGS (1)
  1. TRASYLOL [Suspect]
     Indication: LIVER TRANSPLANT
     Dosage: INTRAVENOUS
     Route: 042

REACTIONS (2)
  - PROCEDURAL COMPLICATION [None]
  - PULMONARY EMBOLISM [None]
